FAERS Safety Report 4299272-6 (Version None)
Quarter: 2004Q1

REPORT INFORMATION
  Report Type: 
  Country: None (occurrence: None)
  Receive Date: 20040217
  Receipt Date: 20040217
  Transmission Date: 20041129
  Serious: Yes (Hospitalization)
  Sender: FDA-Public Use
  Company Number: None

PATIENT
  Age: 70 Year
  Weight: 95.709 kg

DRUGS (8)
  1. PREDNISONE [Suspect]
  2. CASODEX [Concomitant]
  3. MITOXANTRONE [Concomitant]
  4. ZOLADEX [Concomitant]
  5. B6 [Concomitant]
  6. FOLATE [Concomitant]
  7. LISINOPRIL [Concomitant]
  8. CASODEXX [Concomitant]

REACTIONS (1)
  - DEEP VEIN THROMBOSIS [None]
